FAERS Safety Report 22671455 (Version 7)
Quarter: 2024Q2

REPORT INFORMATION
  Report Type: Report from Study
  Country: US (occurrence: US)
  Receive Date: 20230705
  Receipt Date: 20240624
  Transmission Date: 20240716
  Serious: Yes (Death, Life-Threatening, Hospitalization, Other)
  Sender: FDA-Public Use
  Company Number: US-TAKEDA-2023TUS065010

PATIENT
  Age: 65 Year
  Sex: Male

DRUGS (12)
  1. TEDUGLUTIDE [Suspect]
     Active Substance: TEDUGLUTIDE
     Indication: Short-bowel syndrome
     Dosage: 4.5 MILLIGRAM, QD
     Route: 042
     Dates: start: 20211025, end: 20220227
  2. TEDUGLUTIDE [Suspect]
     Active Substance: TEDUGLUTIDE
     Indication: Short-bowel syndrome
     Dosage: 4.5 MILLIGRAM, QD
     Route: 042
     Dates: start: 20211025, end: 20220227
  3. TEDUGLUTIDE [Suspect]
     Active Substance: TEDUGLUTIDE
     Indication: Short-bowel syndrome
     Dosage: 4.5 MILLIGRAM, QD
     Route: 042
     Dates: start: 20211025, end: 20220227
  4. TEDUGLUTIDE [Suspect]
     Active Substance: TEDUGLUTIDE
     Indication: Short-bowel syndrome
     Dosage: 4.5 MILLIGRAM, QD
     Route: 042
     Dates: start: 20211025, end: 20220227
  5. TEDUGLUTIDE [Suspect]
     Active Substance: TEDUGLUTIDE
     Dosage: 4.5 MILLIGRAM, QD
     Route: 042
     Dates: start: 20220302
  6. TEDUGLUTIDE [Suspect]
     Active Substance: TEDUGLUTIDE
     Dosage: 4.5 MILLIGRAM, QD
     Route: 042
     Dates: start: 20220302
  7. TEDUGLUTIDE [Suspect]
     Active Substance: TEDUGLUTIDE
     Dosage: 4.5 MILLIGRAM, QD
     Route: 042
     Dates: start: 20220302
  8. TEDUGLUTIDE [Suspect]
     Active Substance: TEDUGLUTIDE
     Dosage: 4.5 MILLIGRAM, QD
     Route: 042
     Dates: start: 20220302
  9. ENOXAPARIN [Concomitant]
     Active Substance: ENOXAPARIN
     Indication: Deep vein thrombosis
     Dosage: 80 MILLIGRAM, QD
     Route: 058
     Dates: start: 20220422
  10. LOPERAMIDE [Concomitant]
     Active Substance: LOPERAMIDE
     Indication: Short-bowel syndrome
     Dosage: 12 MILLIGRAM
     Route: 048
     Dates: start: 20220424
  11. GABAPENTIN [Concomitant]
     Active Substance: GABAPENTIN
     Indication: Pain
     Dosage: 100 MILLIGRAM, QD
     Route: 048
     Dates: start: 20220424
  12. SODIUM CHLORIDE [Concomitant]
     Active Substance: SODIUM CHLORIDE
     Indication: Dehydration
     Dosage: UNK
     Route: 042
     Dates: start: 20220421, end: 20220423

REACTIONS (5)
  - Cholecystitis [Fatal]
  - Multiple organ dysfunction syndrome [Fatal]
  - Hyperbilirubinaemia [Recovered/Resolved]
  - Hypotension [Recovered/Resolved with Sequelae]
  - Bacteraemia [Recovered/Resolved]

NARRATIVE: CASE EVENT DATE: 20230510
